FAERS Safety Report 18435411 (Version 1)
Quarter: 2020Q4

REPORT INFORMATION
  Report Type: Spontaneous
  Country: DE (occurrence: DE)
  Receive Date: 20201028
  Receipt Date: 20201028
  Transmission Date: 20210114
  Serious: Yes (Other)
  Sender: FDA-Public Use
  Company Number: DE-PFIZER INC-2020414471

PATIENT
  Age: 33 Year
  Sex: Female
  Weight: 89 kg

DRUGS (1)
  1. DEPO-CLINOVIR [Suspect]
     Active Substance: MEDROXYPROGESTERONE ACETATE
     Dosage: 1 INJECTION (150 MG/ML), AS NEEDED
     Dates: start: 202003, end: 202007

REACTIONS (2)
  - Exophthalmos [Not Recovered/Not Resolved]
  - Off label use [Unknown]

NARRATIVE: CASE EVENT DATE: 202003
